FAERS Safety Report 25547325 (Version 1)
Quarter: 2025Q3

REPORT INFORMATION
  Report Type: Spontaneous
  Country: US (occurrence: US)
  Receive Date: 20250714
  Receipt Date: 20250714
  Transmission Date: 20251021
  Serious: No
  Sender: TEVA
  Company Number: US-TEVA-VS-3349619

PATIENT

DRUGS (1)
  1. AUSTEDO [Suspect]
     Active Substance: DEUTETRABENAZINE
     Indication: Product used for unknown indication
     Route: 065
     Dates: start: 20250605

REACTIONS (2)
  - Weight decreased [Unknown]
  - Sluggishness [Unknown]

NARRATIVE: CASE EVENT DATE: 20250618
